FAERS Safety Report 24080886 (Version 1)
Quarter: 2024Q3

REPORT INFORMATION
  Report Type: Spontaneous
  Country: AU (occurrence: AU)
  Receive Date: 20240711
  Receipt Date: 20240711
  Transmission Date: 20241017
  Serious: Yes (Other)
  Sender: WOODWARD PHARMA SERVICES
  Company Number: AU-WOODWARD-2024-AU-000302

PATIENT
  Sex: Male

DRUGS (21)
  1. RABEPRAZOLE SODIUM [Suspect]
     Active Substance: RABEPRAZOLE SODIUM
     Indication: Product used for unknown indication
     Dosage: 40.0 MILLIGRAM(S) (40 MILLIGRAM(S), 1 IN 1 DAY)
     Route: 048
  2. AMITRIPTYLINE [Suspect]
     Active Substance: AMITRIPTYLINE
     Dosage: DOSE AND FREQUENCY UNKNOWN
  3. ATORVASTATIN [Suspect]
     Active Substance: ATORVASTATIN
     Dosage: (80 MILLIGRAM(S)); FREQUENCY UNKNOWN
  4. DOMPERIDONE MALEATE [Suspect]
     Active Substance: DOMPERIDONE MALEATE
     Dosage: DOSE AND FREQUENCY UNKNOWN
  5. DUTASTERIDE\TAMSULOSIN HYDROCHLORIDE [Suspect]
     Active Substance: DUTASTERIDE\TAMSULOSIN HYDROCHLORIDE
     Dosage: DOSE AND FREQUENCY UNKNOWN
  6. FLUDROCORTISONE [Suspect]
     Active Substance: FLUDROCORTISONE
     Dosage: 100 MILLIGRAM(S); FREQUENCY UNKNOWN
  7. FUROSEMIDE [Suspect]
     Active Substance: FUROSEMIDE
     Dosage: DOSE AND FREQUENCY UNKNOWN
  8. METFORMIN [Suspect]
     Active Substance: METFORMIN HYDROCHLORIDE
     Dosage: (100 MILLIGRAM(S)); FREQUENCY UNKNOWN
  9. NORTRIPTYLINE [Suspect]
     Active Substance: NORTRIPTYLINE
     Dosage: DOSE AND FREQUENCY UNKNOWN
  10. PRAMIPEXOLE [Suspect]
     Active Substance: PRAMIPEXOLE\PRAMIPEXOLE DIHYDROCHLORIDE
     Dosage: DOSE AND FREQUENCY UNKNOWN
  11. PREGABALIN [Suspect]
     Active Substance: PREGABALIN
     Dosage: DOSE AND FREQUENCY UNKNOWN
  12. POLYETHYLENE GLYCOL 3350 [Suspect]
     Active Substance: POLYETHYLENE GLYCOL 3350
     Dosage: DOSE AND FREQUENCY UNKNOWN
  13. RASAGILINE MESYLATE [Suspect]
     Active Substance: RASAGILINE MESYLATE
     Dosage: DOSE AND FREQUENCY UNKNOWN
  14. XARELTO [Suspect]
     Active Substance: RIVAROXABAN
     Dosage: DOSE AND FREQUENCY UNKNOWN
  15. SOLIFENACIN SUCCINATE [Suspect]
     Active Substance: SOLIFENACIN SUCCINATE
     Dosage: DOSE AND FREQUENCY UNKNOWN
  16. CARBIDOPA AND LEVODOPA [Suspect]
     Active Substance: CARBIDOPA\LEVODOPA
     Dosage: 1.5 DOSAGE FORM; FREQUENCY UNKNOWN
  17. APOMORPHINE HYDROCHLORIDE [Suspect]
     Active Substance: APOMORPHINE HYDROCHLORIDE
     Dosage: DOSE AND FREQUENCY UNKNOWN
  18. BISACODYL [Suspect]
     Active Substance: BISACODYL
     Dosage: 5 MILLIGRAM(S); FREQUENCY UNKNOWN
  19. CALTRATE WITH VITAMIN D [Suspect]
     Active Substance: CALCIUM CARBONATE\CHOLECALCIFEROL
     Dosage: DOSE AND FREQUENCY UNKNOWN
  20. INTRAGAM P [Suspect]
     Active Substance: HUMAN IMMUNOGLOBULIN G
     Dosage: DOSE AND FREQUENCY UNKNOWN
  21. AMANTADINE [Suspect]
     Active Substance: AMANTADINE
     Dosage: DOSE AND FREQUENCY UNKNOWN

REACTIONS (6)
  - Cerebral hypoperfusion [Unknown]
  - Hypotension [Unknown]
  - Feeling cold [Unknown]
  - Constipation [Unknown]
  - Gait disturbance [Unknown]
  - Speech disorder [Unknown]

NARRATIVE: CASE EVENT DATE: 20211225
